FAERS Safety Report 20651456 (Version 3)
Quarter: 2022Q2

REPORT INFORMATION
  Report Type: Other
  Country: DE (occurrence: None)
  Receive Date: 20220330
  Receipt Date: 20220606
  Transmission Date: 20220721
  Serious: Yes (Other)
  Sender: FDA-Public Use
  Company Number: DE-ROCHE-2794443

PATIENT
  Age: 26 Year
  Sex: Female

DRUGS (3)
  1. OCREVUS [Suspect]
     Active Substance: OCRELIZUMAB
     Indication: Relapsing-remitting multiple sclerosis
     Route: 042
     Dates: start: 20210210
  2. COMIRNATY [Suspect]
     Active Substance: TOZINAMERAN
     Indication: COVID-19 immunisation
     Route: 065
  3. MAXIM (GERMANY) [Concomitant]
     Indication: Contraception

REACTIONS (13)
  - Multiple sclerosis [Not Recovered/Not Resolved]
  - Cystitis noninfective [Recovered/Resolved]
  - Vulvovaginal dryness [Recovered/Resolved]
  - Pain in extremity [Recovered/Resolved]
  - Fatigue [Recovered/Resolved]
  - Headache [Not Recovered/Not Resolved]
  - Sensitivity to weather change [Recovered/Resolved]
  - Paraesthesia [Not Recovered/Not Resolved]
  - Sensory disturbance [Recovered/Resolved]
  - Dizziness [Unknown]
  - Gastrointestinal fungal infection [Not Recovered/Not Resolved]
  - Dysbiosis [Not Recovered/Not Resolved]
  - Pain in extremity [Recovered/Resolved]

NARRATIVE: CASE EVENT DATE: 20210217
